FAERS Safety Report 6656865-6 (Version None)
Quarter: 2010Q1

REPORT INFORMATION
  Report Type: 
  Country: None (occurrence: None)
  Receive Date: 20100329
  Receipt Date: 20100329
  Transmission Date: 20100710
  Serious: Yes (Other)
  Sender: FDA-Public Use
  Company Number: None

PATIENT
  Age: 70 Year
  Sex: Female
  Weight: 68.9467 kg

DRUGS (1)
  1. BONIVA [Suspect]
     Indication: BONE DENSITY ABNORMAL
     Dosage: ONCE MONTHLY
     Dates: start: 20070801, end: 20081201

REACTIONS (2)
  - COUGH [None]
  - OESOPHAGITIS [None]
